FAERS Safety Report 15397039 (Version 1)
Quarter: 2018Q3

REPORT INFORMATION
  Report Type: Spontaneous
  Country: US (occurrence: US)
  Receive Date: 20180918
  Receipt Date: 20180918
  Transmission Date: 20181010
  Serious: No
  Sender: FDA-Public Use
  Company Number: US-SA-2018SA258434

PATIENT
  Sex: Female

DRUGS (4)
  1. ICY HOT [Suspect]
     Active Substance: MENTHOL\METHYL SALICYLATE
     Indication: MUSCLE SPASMS
  2. ICY HOT MEDICATED NO MESS APPLICATOR [Suspect]
     Active Substance: MENTHOL
     Indication: MUSCLE SPASMS
  3. ICY HOT POWER GEL [Suspect]
     Active Substance: MENTHOL
     Indication: MUSCLE SPASMS
  4. ICY HOT MEDICATED SPRAY [Suspect]
     Active Substance: MENTHOL
     Indication: MUSCLE SPASMS

REACTIONS (2)
  - Drug effective for unapproved indication [Unknown]
  - Thermal burn [Unknown]
